FAERS Safety Report 22317529 (Version 1)
Quarter: 2023Q2

REPORT INFORMATION
  Report Type: Spontaneous
  Country: FR (occurrence: FR)
  Receive Date: 20230515
  Receipt Date: 20230515
  Transmission Date: 20230722
  Serious: Yes (Death, Other)
  Sender: FDA-Public Use
  Company Number: FR-AFSSAPS-TS2023000521

PATIENT
  Age: 79 Year
  Sex: Male

DRUGS (1)
  1. PERINDOPRIL [Suspect]
     Active Substance: PERINDOPRIL
     Indication: Hypertension
     Dosage: 2 MILLIGRAM PER 24 HOURS
     Route: 048
     Dates: end: 20230422

REACTIONS (2)
  - Respiratory distress [Fatal]
  - Angioedema [Fatal]

NARRATIVE: CASE EVENT DATE: 20230422
